FAERS Safety Report 22393468 (Version 1)
Quarter: 2023Q2

REPORT INFORMATION
  Report Type: Report from Study
  Country: DE (occurrence: DE)
  Receive Date: 20230601
  Receipt Date: 20230601
  Transmission Date: 20230721
  Serious: Yes (Hospitalization)
  Sender: FDA-Public Use
  Company Number: DE-JNJFOC-20200701933

PATIENT
  Age: 6 Decade
  Sex: Male

DRUGS (5)
  1. SIMPONI [Suspect]
     Active Substance: GOLIMUMAB
     Indication: Psoriatic arthropathy
     Route: 058
     Dates: start: 20190401
  2. SIMPONI [Suspect]
     Active Substance: GOLIMUMAB
     Route: 058
     Dates: start: 20210120, end: 20210915
  3. ETORICOXIB [Concomitant]
     Active Substance: ETORICOXIB
     Dates: start: 20211215
  4. COSENTYX [Concomitant]
     Active Substance: SECUKINUMAB
     Dates: start: 20211115, end: 20211215
  5. COSENTYX [Concomitant]
     Active Substance: SECUKINUMAB
     Dosage: 150 MG LOADING
     Dates: start: 20220215

REACTIONS (5)
  - Psoriatic arthropathy [Recovered/Resolved]
  - Bronchitis [Unknown]
  - Influenza like illness [Unknown]
  - Nasopharyngitis [Unknown]
  - Infection [Unknown]

NARRATIVE: CASE EVENT DATE: 20191115
